FAERS Safety Report 24340952 (Version 2)
Quarter: 2025Q1

REPORT INFORMATION
  Report Type: Spontaneous
  Country: US (occurrence: US)
  Receive Date: 20240919
  Receipt Date: 20250102
  Transmission Date: 20250409
  Serious: Yes (Hospitalization, Other)
  Sender: SK LIFE SCIENCE
  Company Number: US-SK LIFE SCIENCE, INC.-SKPVG-2024-002136

PATIENT

DRUGS (4)
  1. XCOPRI [Suspect]
     Active Substance: CENOBAMATE
     Indication: Seizure
     Route: 048
     Dates: start: 202406
  2. XCOPRI [Suspect]
     Active Substance: CENOBAMATE
     Route: 048
  3. XCOPRI [Suspect]
     Active Substance: CENOBAMATE
     Dosage: 100 MILLIGRAM, ONCE A DAY
     Route: 048
     Dates: end: 20241213
  4. OXCARBAZEPINE [Concomitant]
     Active Substance: OXCARBAZEPINE
     Indication: Product used for unknown indication
     Route: 065

REACTIONS (5)
  - Seizure [Unknown]
  - Mental impairment [Unknown]
  - Disturbance in attention [Unknown]
  - Product dose omission issue [Not Recovered/Not Resolved]
  - Drug titration error [Recovered/Resolved]

NARRATIVE: CASE EVENT DATE: 20241214
